FAERS Safety Report 25300541 (Version 2)
Quarter: 2025Q2

REPORT INFORMATION
  Report Type: Spontaneous
  Country: US (occurrence: US)
  Receive Date: 20250512
  Receipt Date: 20250522
  Transmission Date: 20250717
  Serious: Yes (Other)
  Sender: TEVA
  Company Number: US-TEVA-VS-3329156

PATIENT
  Age: 69 Year
  Sex: Male

DRUGS (4)
  1. MEGESTROL [Suspect]
     Active Substance: MEGESTROL
     Indication: Product used for unknown indication
     Dosage: ACETATE
     Route: 065
  2. HYDROCODONE BITARTRATE AND ACETAMINOPHEN [Concomitant]
     Active Substance: ACETAMINOPHEN\HYDROCODONE BITARTRATE
     Indication: Product used for unknown indication
     Route: 065
  3. GABAPENTIN [Concomitant]
     Active Substance: GABAPENTIN
     Indication: Product used for unknown indication
     Route: 065
  4. MORPHINE [Concomitant]
     Active Substance: MORPHINE
     Indication: Product used for unknown indication
     Dosage: EXTENDED-RELEASE
     Route: 065

REACTIONS (2)
  - Hypogonadism [Not Recovered/Not Resolved]
  - Adrenal insufficiency [Recovering/Resolving]
